FAERS Safety Report 19741937 (Version 2)
Quarter: 2021Q3

REPORT INFORMATION
  Report Type: Report from Study
  Country: US (occurrence: US)
  Receive Date: 20210824
  Receipt Date: 20210914
  Transmission Date: 20211014
  Serious: No
  Sender: FDA-Public Use
  Company Number: NVSC2021US179156

PATIENT
  Sex: Female

DRUGS (1)
  1. TABRECTA [Suspect]
     Active Substance: CAPMATINIB
     Indication: PRODUCT USED FOR UNKNOWN INDICATION
     Dosage: FROM 4 PILLS PER DAY TO 2 PILLS PER DAY
     Route: 048

REACTIONS (3)
  - Bone disorder [Unknown]
  - Diarrhoea [Unknown]
  - Dehydration [Unknown]
